FAERS Safety Report 10927261 (Version 4)
Quarter: 2016Q1

REPORT INFORMATION
  Report Type: Spontaneous
  Country: US (occurrence: US)
  Receive Date: 20150318
  Receipt Date: 20160127
  Transmission Date: 20160525
  Serious: Yes (Hospitalization, Other)
  Sender: FDA-Public Use
  Company Number: US-GLAXOSMITHKLINE-US2015033772

PATIENT
  Age: 74 Year
  Sex: Female

DRUGS (9)
  1. ASPIRIN (BABY) [Concomitant]
     Active Substance: ASPIRIN
  2. ASPIRIN. [Concomitant]
     Active Substance: ASPIRIN
  3. CIPROFLOXACIN. [Concomitant]
     Active Substance: CIPROFLOXACIN
  4. FUROSEMIDE. [Concomitant]
     Active Substance: FUROSEMIDE
  5. LISINOPRIL. [Concomitant]
     Active Substance: LISINOPRIL
  6. ROSUVASTATIN [Concomitant]
     Active Substance: ROSUVASTATIN
  7. SORIATANE [Suspect]
     Active Substance: ACITRETIN
     Indication: SKIN DISORDER
     Dosage: 25 MG, 1D
     Route: 048
  8. POTASSIUM CHLORIDE. [Concomitant]
     Active Substance: POTASSIUM CHLORIDE
  9. SORIATANE [Suspect]
     Active Substance: ACITRETIN
     Indication: KERATOSIS FOLLICULAR
     Dosage: 25 MG
     Route: 048

REACTIONS (14)
  - Polyp [Unknown]
  - Nodule [Not Recovered/Not Resolved]
  - Rehabilitation therapy [Unknown]
  - Colon neoplasm [Unknown]
  - Eye disorder [Unknown]
  - Drug dose omission [Unknown]
  - Colon operation [Unknown]
  - Thrombosis [Recovering/Resolving]
  - Intentional product use issue [Not Recovered/Not Resolved]
  - Blindness unilateral [Unknown]
  - Hip fracture [Recovering/Resolving]
  - Product use issue [Not Recovered/Not Resolved]
  - Lip dry [Unknown]
  - Ear infection [Recovering/Resolving]

NARRATIVE: CASE EVENT DATE: 201502
